FAERS Safety Report 7538039-X (Version None)
Quarter: 2011Q2

REPORT INFORMATION
  Report Type: 
  Country: None (occurrence: None)
  Receive Date: 20110609
  Receipt Date: 20110606
  Transmission Date: 20111010
  Serious: Yes (Death)
  Sender: FDA-Public Use
  Company Number: PHHY2011DE48187

PATIENT
  Age: 72 Year
  Sex: Male

DRUGS (2)
  1. AFINITOR [Suspect]
     Indication: RENAL CELL CARCINOMA
     Dosage: 10 MG, PER DAY
     Route: 048
     Dates: start: 20100903, end: 20101202
  2. ZOMETA [Suspect]
     Indication: METASTASES TO BONE
     Route: 042
     Dates: start: 20071220, end: 20090625

REACTIONS (4)
  - ABSCESS JAW [None]
  - OSTEONECROSIS OF JAW [None]
  - IMPAIRED HEALING [None]
  - SEPSIS [None]
